FAERS Safety Report 24247265 (Version 1)
Quarter: 2024Q3

REPORT INFORMATION
  Report Type: Spontaneous
  Country: US (occurrence: US)
  Receive Date: 20240826
  Receipt Date: 20240826
  Transmission Date: 20241017
  Serious: No
  Sender: ROCHE
  Company Number: US-ROCHE-10000058859

PATIENT
  Sex: Female
  Weight: 54.88 kg

DRUGS (4)
  1. VABYSMO [Suspect]
     Active Substance: FARICIMAB\FARICIMAB-SVOA
     Indication: Neovascular age-related macular degeneration
     Dosage: RIGHT EYE?RECEIVED A 2ND DOSE OF VABYSMO IN HER RIGHT EYE ON 13-AUGUST-2024
     Route: 050
     Dates: start: 20240703
  2. CHLORTHALIDONE [Concomitant]
     Active Substance: CHLORTHALIDONE
     Indication: Blood pressure measurement
     Route: 048
     Dates: start: 202407
  3. EYLEA [Concomitant]
     Active Substance: AFLIBERCEPT
     Indication: Neovascular age-related macular degeneration
     Dosage: LEFT EYE
     Route: 050
     Dates: start: 20240526
  4. EYLEA [Concomitant]
     Active Substance: AFLIBERCEPT
     Dosage: RIGHT EYE
     Route: 050
     Dates: end: 20240703

REACTIONS (3)
  - Glomerular filtration rate decreased [Not Recovered/Not Resolved]
  - Decreased appetite [Not Recovered/Not Resolved]
  - Off label use [Unknown]

NARRATIVE: CASE EVENT DATE: 20240814
